FAERS Safety Report 13533367 (Version 1)
Quarter: 2017Q2

REPORT INFORMATION
  Report Type: Spontaneous
  Country: US (occurrence: US)
  Receive Date: 20170510
  Receipt Date: 20170510
  Transmission Date: 20170830
  Serious: No
  Sender: FDA-Public Use
  Company Number: US-TARO-2017TAR00084

PATIENT
  Sex: Male

DRUGS (1)
  1. CARBAMAZEPINE EXTENDED RELEASE [Suspect]
     Active Substance: CARBAMAZEPINE
     Indication: SEIZURE
     Dosage: UNK
     Dates: end: 2016

REACTIONS (4)
  - Drug ineffective [Recovered/Resolved]
  - Feeling abnormal [Recovered/Resolved]
  - Medication residue present [Recovered/Resolved]
  - Product substitution issue [Recovered/Resolved]
